FAERS Safety Report 19513089 (Version 2)
Quarter: 2021Q3

REPORT INFORMATION
  Report Type: Spontaneous
  Country: US (occurrence: US)
  Receive Date: 20210709
  Receipt Date: 20210722
  Transmission Date: 20211014
  Serious: Yes (Hospitalization, Other)
  Sender: FDA-Public Use
  Company Number: US-PFIZER INC-2021814974

PATIENT
  Age: 46 Year
  Sex: Female

DRUGS (3)
  1. IBRANCE [Suspect]
     Active Substance: PALBOCICLIB
     Dosage: 100 MG
  2. IBRANCE [Suspect]
     Active Substance: PALBOCICLIB
     Dosage: 75 MG
     Dates: start: 20210622
  3. IBRANCE [Suspect]
     Active Substance: PALBOCICLIB
     Dosage: 75 MG
     Dates: start: 20200101

REACTIONS (7)
  - White blood cell count decreased [Unknown]
  - Oral mucosal blistering [Unknown]
  - Fatigue [Unknown]
  - Diarrhoea [Unknown]
  - Anaemia [Unknown]
  - Weight decreased [Unknown]
  - Feeding disorder [Unknown]
